FAERS Safety Report 4484378-9 (Version None)
Quarter: 2004Q4

REPORT INFORMATION
  Report Type: 
  Country: None (occurrence: None)
  Receive Date: 20041021
  Receipt Date: 20041006
  Transmission Date: 20050328
  Serious: Yes (Death)
  Sender: FDA-Public Use
  Company Number: 2004AL000522

PATIENT
  Age: 16 Year

DRUGS (5)
  1. IBUPROFEN [Suspect]
     Dosage: PO
     Route: 048
  2. IBUPROFEN [Suspect]
     Dosage: PO
     Route: 048
  3. CHILDREN'S APAP ELIXIR (ACETAMINOPHEN) (ALPHARMA) [Suspect]
     Dosage: PO
     Route: 048
  4. INFANT'S APAP DROPS (ACETAMINOPHEN) (ALPHARMA) [Suspect]
     Dosage: PO
     Route: 048
  5. ACETAMINOPHEN AND HYDROCODONE BITARTRATE [Suspect]
     Dosage: PO
     Route: 048

REACTIONS (11)
  - ALANINE AMINOTRANSFERASE INCREASED [None]
  - ASPARTATE AMINOTRANSFERASE INCREASED [None]
  - BLOOD METHAEMOGLOBIN PRESENT [None]
  - BLOOD PRESSURE DECREASED [None]
  - BODY TEMPERATURE DECREASED [None]
  - COMA [None]
  - COMPLETED SUICIDE [None]
  - HEART RATE INCREASED [None]
  - METABOLIC ACIDOSIS [None]
  - MULTIPLE DRUG OVERDOSE [None]
  - VOMITING [None]
